FAERS Safety Report 5366278-5 (Version None)
Quarter: 2007Q2

REPORT INFORMATION
  Report Type: 
  Country: None (occurrence: None)
  Receive Date: 20070619
  Receipt Date: 20070619
  Transmission Date: 20071010
  Serious: Yes (Hospitalization)
  Sender: FDA-Public Use
  Company Number: None

PATIENT
  Age: 62 Year
  Sex: Male

DRUGS (2)
  1. ALLOPURINOL [Suspect]
     Indication: GOUT
     Dosage: 300MG EVERY DAY PO
     Route: 048
     Dates: start: 20060803, end: 20070613
  2. COLCHICINE [Suspect]
     Indication: GOUT
     Dosage: 0.6MG BID PO
     Route: 048

REACTIONS (1)
  - RENAL FAILURE ACUTE [None]
